FAERS Safety Report 15006441 (Version 2)
Quarter: 2018Q4

REPORT INFORMATION
  Report Type: Report from Study
  Country: CA (occurrence: CA)
  Receive Date: 20180613
  Receipt Date: 20181003
  Transmission Date: 20190204
  Serious: Yes (Other)
  Sender: FDA-Public Use
  Company Number: CA-JNJFOC-20180605272

PATIENT
  Age: 46 Year
  Sex: Male
  Weight: 120 kg

DRUGS (1)
  1. REMICADE [Suspect]
     Active Substance: INFLIXIMAB
     Indication: CROHN^S DISEASE
     Dosage: STRENGTH = 100 MG, 24TH INFUSION 600 MG ONCE EVERY 4 WEEKS ON 24-SEP-2018
     Route: 042
     Dates: start: 20160720

REACTIONS (6)
  - Off label use [Unknown]
  - Abdominal pain [Not Recovered/Not Resolved]
  - Product use issue [Unknown]
  - Intestinal resection [Unknown]
  - Umbilical hernia [Not Recovered/Not Resolved]
  - Abdominal operation [Unknown]

NARRATIVE: CASE EVENT DATE: 20160720
